FAERS Safety Report 7931967-2 (Version None)
Quarter: 2011Q4

REPORT INFORMATION
  Report Type: 
  Country: None (occurrence: None)
  Receive Date: 20111121
  Receipt Date: 20111117
  Transmission Date: 20120403
  Serious: Yes (Hospitalization)
  Sender: FDA-Public Use
  Company Number: DE-ROCHE-591555

PATIENT
  Age: 62 Year
  Sex: Male

DRUGS (27)
  1. TACROLIMUS [Suspect]
     Route: 065
     Dates: start: 20080520, end: 20080520
  2. TACROLIMUS [Suspect]
     Route: 065
  3. ANTIRHEUMATIC AGENT NOS [Concomitant]
  4. MYCOPHENOLATE MOFETIL (CELLCEPT) [Suspect]
     Route: 065
  5. TACROLIMUS [Suspect]
     Indication: PRODUCT USED FOR UNKNOWN INDICATION
     Route: 065
     Dates: start: 20080510, end: 20080515
  6. COTRIM DS [Concomitant]
     Dosage: TDD REPORTED AS 1/2 TABLET.
  7. TAMSULOSIN HCL [Concomitant]
  8. NEORECORMON [Concomitant]
     Dosage: TDD: 4000 IE
  9. MYCOPHENOLATE MOFETIL (CELLCEPT) [Suspect]
     Route: 065
     Dates: start: 20080523, end: 20080523
  10. VALCYTE [Suspect]
     Indication: ANTIVIRAL PROPHYLAXIS
     Route: 048
  11. TACROLIMUS [Suspect]
     Route: 065
     Dates: start: 20080519, end: 20080519
  12. NEURONTIN [Concomitant]
     Dates: start: 20080423, end: 20080530
  13. AVANDIA [Concomitant]
     Dates: start: 20080507, end: 20080527
  14. CIPROFLOXACIN [Concomitant]
     Dates: start: 20080510, end: 20080530
  15. TACROLIMUS [Suspect]
     Route: 065
  16. PREDNISONE TAB [Concomitant]
     Dates: start: 20080506, end: 20080515
  17. PREDNISONE TAB [Concomitant]
  18. PANTOPRAZOLE [Concomitant]
  19. METOPROLOL TARTRATE [Concomitant]
     Dates: start: 20080507, end: 20080527
  20. AMPHOTERICIN B [Concomitant]
  21. MYCOPHENOLATE MOFETIL (CELLCEPT) [Suspect]
     Indication: PRODUCT USED FOR UNKNOWN INDICATION
     Route: 065
     Dates: start: 20080414, end: 20080515
  22. TACROLIMUS [Suspect]
     Route: 065
     Dates: start: 20080516, end: 20080516
  23. TACROLIMUS [Suspect]
     Route: 065
     Dates: start: 20080517, end: 20080518
  24. REPAGLINIDE [Concomitant]
     Dates: start: 20080503, end: 20080527
  25. ACTRAPHANE [Concomitant]
     Dosage: DOSE AS REQUIRED.
  26. TACROLIMUS [Suspect]
     Route: 065
     Dates: start: 20080515, end: 20080515
  27. TORSEMIDE [Concomitant]
     Dates: start: 20080514, end: 20080603

REACTIONS (3)
  - BENIGN PROSTATIC HYPERPLASIA [None]
  - TRANSPLANT REJECTION [None]
  - PYELONEPHRITIS [None]
